FAERS Safety Report 5585638-0 (Version None)
Quarter: 2007Q4

REPORT INFORMATION
  Report Type: 
  Country: None (occurrence: None)
  Receive Date: 20071204
  Receipt Date: 20071018
  Transmission Date: 20080405
  Serious: No
  Sender: FDA-Public Use
  Company Number: 2007088599

PATIENT
  Sex: Male

DRUGS (1)
  1. SEIZENTRY (MARAVIROC) [Suspect]
     Indication: HIV INFECTION

REACTIONS (1)
  - LIPIDS INCREASED [None]
